FAERS Safety Report 21497643 (Version 2)
Quarter: 2023Q4

REPORT INFORMATION
  Report Type: Spontaneous
  Country: AT (occurrence: AT)
  Receive Date: 20221024
  Receipt Date: 20231031
  Transmission Date: 20240110
  Serious: Yes (Hospitalization)
  Sender: FDA-Public Use
  Company Number: AT-ROCHE-3121935

PATIENT
  Age: 74 Year
  Sex: Female
  Weight: 53 kg

DRUGS (23)
  1. FULVESTRANT [Suspect]
     Active Substance: FULVESTRANT
     Indication: Breast cancer metastatic
     Dosage: MOST RECENT DOSE ADMINISTERED ON /OCT/2021?1 TIMES IN 4 WEEKS
     Route: 030
     Dates: start: 20200716
  2. DOCETAXEL [Suspect]
     Active Substance: DOCETAXEL
     Indication: Breast cancer metastatic
     Dosage: MOST RECENT DOSE ADMINISTERED ON 13/OCT/2016?1 TIMES PER 3 WEEKS. AMOUNT PER ADMINISTRATION WAS CHAN
     Route: 030
     Dates: start: 20160629
  3. CAPECITABINE [Suspect]
     Active Substance: CAPECITABINE
     Indication: Breast cancer metastatic
     Dosage: MOST RECENT DOSE ADMINISTERED ON /FEB/2022
     Route: 048
     Dates: start: 20211025, end: 202201
  4. CAPECITABINE [Suspect]
     Active Substance: CAPECITABINE
     Route: 048
     Dates: start: 20220118
  5. DENOSUMAB [Suspect]
     Active Substance: DENOSUMAB
     Indication: Breast cancer metastatic
     Dosage: MOST RECENT DOSE ADMINISTERED ON /JAN/2021?1 TIMES PER 4 WEEKS
     Route: 058
     Dates: start: 20161121
  6. PALBOCICLIB [Suspect]
     Active Substance: PALBOCICLIB
     Indication: Breast cancer metastatic
     Dosage: MOST RECENT DOSE ADMINISTERED ON /DEC/2020
     Route: 048
     Dates: start: 202011, end: 202012
  7. PERTUZUMAB [Suspect]
     Active Substance: PERTUZUMAB
     Indication: Breast cancer metastatic
     Dosage: MOST RECENT DOSE PRIOR TO THE EVENT: 27/FEB/2020?1 TIMES PER 3 WEEKS
     Route: 030
     Dates: start: 20160629, end: 20180601
  8. RIBOCICLIB [Suspect]
     Active Substance: RIBOCICLIB
     Indication: Breast cancer metastatic
     Dosage: MOST RECENT DOSE ADMINISTERED ON 24/NOV/2020
     Route: 048
     Dates: start: 20200716, end: 202008
  9. RIBOCICLIB [Suspect]
     Active Substance: RIBOCICLIB
     Dosage: MOST RECENT DOSE ADMINISTERED ON 18/NOV/2020
     Route: 048
     Dates: start: 20200824
  10. LETROZOLE [Suspect]
     Active Substance: LETROZOLE
     Indication: Breast cancer metastatic
     Dosage: MOST RECENT DOSE ADMINISTERED ON 29/JUN/2020?1 TIME PER DAY
     Route: 048
     Dates: start: 20161021
  11. TRASTUZUMAB [Suspect]
     Active Substance: TRASTUZUMAB
     Indication: Breast cancer metastatic
     Dosage: MOST RECENT DOSE PRIOR TO THE EVENT: 27/FEB/2020?1 TIMES PER 3 WEEKS
     Route: 030
     Dates: start: 20160629, end: 20180621
  12. METHYLPREDNISOLONE ACEPONATE [Concomitant]
     Active Substance: METHYLPREDNISOLONE ACEPONATE
     Indication: Palmar-plantar erythrodysaesthesia syndrome
     Dosage: ONGOING = CHECKED
     Dates: start: 20201111
  13. Acetylsalicylic acid (Thrombo Ass) [Concomitant]
     Indication: Product used for unknown indication
     Dosage: ONGOING = CHECKED
     Dates: start: 20170115
  14. HYDROMORPHONE HYDROCHLORIDE [Concomitant]
     Active Substance: HYDROMORPHONE HYDROCHLORIDE
     Indication: Pain
     Dosage: ONGOING = CHECKED
     Dates: start: 20210915
  15. AMOXICILLIN\CLAVULANATE POTASSIUM [Concomitant]
     Active Substance: AMOXICILLIN\CLAVULANATE POTASSIUM
     Indication: Osteonecrosis of jaw
     Dosage: ONGOING = CHECKED
     Dates: start: 20210915
  16. EUTHYROX [Concomitant]
     Active Substance: LEVOTHYROXINE SODIUM
     Indication: Product used for unknown indication
     Dosage: ONGOING = CHECKED
     Dates: start: 20210223
  17. BETAISODONA [Concomitant]
     Active Substance: POVIDONE-IODINE
     Indication: Paronychia
     Dosage: ONGOING = CHECKED
     Dates: start: 20201111
  18. NEBIVOLOL HYDROCHLORIDE [Concomitant]
     Active Substance: NEBIVOLOL HYDROCHLORIDE
     Indication: Product used for unknown indication
     Dosage: ONGOING = CHECKED
     Dates: start: 20170115
  19. NOVALGIN (METAMIZOLE SODIUM) [Concomitant]
     Active Substance: METAMIZOLE SODIUM
     Indication: Product used for unknown indication
     Dosage: ONGOING = CHECKED
     Dates: start: 20210915
  20. DIPRODERM [BETAMETHASONE DIPROPIONATE] [Concomitant]
     Indication: Rash
     Dosage: ONGOING = CHECKED
     Dates: start: 20180621
  21. DIPRODERM [BETAMETHASONE DIPROPIONATE] [Concomitant]
     Indication: Product used for unknown indication
  22. PANTOPRAZOLE SODIUM [Concomitant]
     Active Substance: PANTOPRAZOLE SODIUM
     Indication: Gastritis
     Dosage: ONGOING = CHECKED
     Dates: start: 20211115
  23. TRAMADOL [Concomitant]
     Active Substance: TRAMADOL\TRAMADOL HYDROCHLORIDE
     Indication: Contusion
     Dosage: ONGOING = CHECKED
     Dates: start: 20220615

REACTIONS (2)
  - Contusion [Recovered/Resolved]
  - Blood bilirubin increased [Recovered/Resolved]

NARRATIVE: CASE EVENT DATE: 20211227
